FAERS Safety Report 5948305-7 (Version None)
Quarter: 2008Q4

REPORT INFORMATION
  Report Type: 
  Country: None (occurrence: None)
  Receive Date: 20081110
  Receipt Date: 20081110
  Transmission Date: 20090506
  Serious: Yes (Other)
  Sender: FDA-Public Use
  Company Number: None

PATIENT
  Sex: Female
  Weight: 19.5047 kg

DRUGS (1)
  1. VYVANSE [Suspect]
     Indication: ATTENTION DEFICIT/HYPERACTIVITY DISORDER
     Dosage: 30 MG DAILY PO/ 50 MG
     Route: 048
     Dates: start: 20080909, end: 20081101

REACTIONS (5)
  - ABNORMAL BEHAVIOUR [None]
  - AGORAPHOBIA [None]
  - SELF INJURIOUS BEHAVIOUR [None]
  - SLEEP TERROR [None]
  - WEIGHT DECREASED [None]
